FAERS Safety Report 15312374 (Version 3)
Quarter: 2019Q1

REPORT INFORMATION
  Report Type: Spontaneous
  Country: US (occurrence: US)
  Receive Date: 20180823
  Receipt Date: 20190125
  Transmission Date: 20190417
  Serious: No
  Sender: FDA-Public Use
  Company Number: US-PFIZER INC-2018340201

PATIENT
  Age: 33 Year
  Sex: Female

DRUGS (4)
  1. LOVENOX [Suspect]
     Active Substance: ENOXAPARIN SODIUM
  2. BENZONATATE. [Suspect]
     Active Substance: BENZONATATE
  3. TOPAMAX [Suspect]
     Active Substance: TOPIRAMATE
  4. TESSALON [Suspect]
     Active Substance: BENZONATATE
     Dosage: UNK

REACTIONS (1)
  - Drug hypersensitivity [Unknown]
